FAERS Safety Report 24199294 (Version 2)
Quarter: 2024Q4

REPORT INFORMATION
  Report Type: Report from Study
  Country: US (occurrence: US)
  Receive Date: 20240812
  Receipt Date: 20241007
  Transmission Date: 20250115
  Serious: Yes (Hospitalization, Other)
  Sender: ABBVIE
  Company Number: US-ABBVIE-5542934

PATIENT
  Age: 38 Year
  Sex: Male
  Weight: 82 kg

DRUGS (3)
  1. RINVOQ [Suspect]
     Active Substance: UPADACITINIB
     Indication: Colitis ulcerative
     Dosage: FORM STRENGTH: 45 MG, LOADING DOSE
     Route: 048
     Dates: start: 20230523, end: 202307
  2. RINVOQ [Suspect]
     Active Substance: UPADACITINIB
     Indication: Colitis ulcerative
     Dosage: FORM STRENGTH: 30 MG, MAINTENANCE DOSE
     Route: 048
     Dates: start: 202307, end: 20240604
  3. RINVOQ [Suspect]
     Active Substance: UPADACITINIB
     Indication: Colitis ulcerative
     Dosage: MOUTH, LAST ADMIN DATE: 2023
     Route: 048
     Dates: start: 20230504

REACTIONS (2)
  - Gastrointestinal disorder [Recovering/Resolving]
  - Immune system disorder [Not Recovered/Not Resolved]

NARRATIVE: CASE EVENT DATE: 20231204
